FAERS Safety Report 5473914-1 (Version None)
Quarter: 2007Q3

REPORT INFORMATION
  Report Type: 
  Country: None (occurrence: None)
  Receive Date: 20070831
  Receipt Date: 20070531
  Transmission Date: 20080115
  Serious: No
  Sender: FDA-Public Use
  Company Number: 236641

PATIENT
  Age: 82 Year
  Sex: Female

DRUGS (14)
  1. LUCENTIS [Suspect]
     Indication: MACULAR DEGENERATION
     Dosage: 1/MONTH, INTRAVITREAL
     Dates: start: 20060901
  2. ZOCOR [Concomitant]
  3. PLAVIX [Concomitant]
  4. PRILOSEC (OMEPRAZOLEZ) [Concomitant]
  5. SULNAR (NISOLDIPINE) [Concomitant]
  6. ADVAIR DISKUS 100/50 [Concomitant]
  7. ALBUTEROL (ALBUTEROL/ALBUTEROL SULFATE) [Concomitant]
  8. CALCIUM (CALCIUM NOS) [Concomitant]
  9. FIBER LAXATIVE (LAXATIVES NOS) [Concomitant]
  10. ASPIRIN [Concomitant]
  11. PRESERVISION NOS (VITAMINS AND MINERALS) [Concomitant]
  12. CHOLESTYRAMINE [Concomitant]
  13. XANAX [Concomitant]
  14. OXAPROZIN [Concomitant]

REACTIONS (3)
  - LARYNGITIS [None]
  - NASOPHARYNGITIS [None]
  - PAIN [None]
